FAERS Safety Report 15755483 (Version 7)
Quarter: 2022Q4

REPORT INFORMATION
  Report Type: Report from Study
  Country: CA (occurrence: CA)
  Receive Date: 20181224
  Receipt Date: 20221020
  Transmission Date: 20230112
  Serious: Yes (Hospitalization, Other)
  Sender: FDA-Public Use
  Company Number: PHHY2018CA053446

PATIENT
  Age: 64 Year
  Sex: Male

DRUGS (6)
  1. SANDOSTATIN [Suspect]
     Active Substance: OCTREOTIDE ACETATE
     Indication: Carcinoid tumour
     Dosage: UNK UNK, QD
     Route: 058
     Dates: start: 20180605
  2. SANDOSTATIN [Suspect]
     Active Substance: OCTREOTIDE ACETATE
  3. SANDOSTATIN [Suspect]
     Active Substance: OCTREOTIDE ACETATE
  4. SANDOSTATIN LAR DEPOT [Suspect]
     Active Substance: OCTREOTIDE ACETATE
     Indication: Carcinoid tumour
     Dosage: 30 MG, QMO
     Route: 030
     Dates: start: 20180808
  5. SANDOSTATIN LAR DEPOT [Suspect]
     Active Substance: OCTREOTIDE ACETATE
  6. SANDOSTATIN LAR DEPOT [Suspect]
     Active Substance: OCTREOTIDE ACETATE

REACTIONS (8)
  - Blood sodium decreased [Unknown]
  - Neuroendocrine carcinoma metastatic [Unknown]
  - Malignant neoplasm progression [Unknown]
  - Flushing [Unknown]
  - Carcinoid tumour [Unknown]
  - Blood pressure increased [Unknown]
  - Infection [Unknown]
  - Vomiting [Unknown]

NARRATIVE: CASE EVENT DATE: 20181101
